FAERS Safety Report 6045200-2 (Version None)
Quarter: 2009Q1

REPORT INFORMATION
  Report Type: 
  Country: None (occurrence: None)
  Receive Date: 20090121
  Receipt Date: 20081020
  Transmission Date: 20090719
  Serious: Yes (Other)
  Sender: FDA-Public Use
  Company Number: US-BAYER-200834982NA

PATIENT
  Age: 59 Year
  Sex: Female

DRUGS (13)
  1. REFLUDAN [Suspect]
     Indication: HEPARIN-INDUCED THROMBOCYTOPENIA
     Route: 058
     Dates: start: 20080828, end: 20080902
  2. REFLUDAN [Suspect]
     Route: 058
     Dates: start: 20080915, end: 20080916
  3. TYLENOL W/ CODEINE [Concomitant]
  4. ATROPINE [Concomitant]
  5. HYDROMORPHONE HCL [Concomitant]
  6. POTASSIUM SUPPLEMENT [Concomitant]
     Route: 042
  7. METOPROLOL TARTRATE [Concomitant]
  8. INSULIN [Concomitant]
  9. COMBIVENT [Concomitant]
  10. METRONIDAZOLE [Concomitant]
  11. CEFEPIME [Concomitant]
  12. LEVOTHYROXINE SODIUM [Concomitant]
  13. HEPARIN [Concomitant]
     Dates: start: 20080823

REACTIONS (4)
  - LUNG INFILTRATION [None]
  - PROTHROMBIN LEVEL DECREASED [None]
  - PULMONARY OEDEMA [None]
  - RESPIRATORY FAILURE [None]
